FAERS Safety Report 5698063-9 (Version None)
Quarter: 2008Q2

REPORT INFORMATION
  Report Type: 
  Country: None (occurrence: None)
  Receive Date: 20080404
  Receipt Date: 20080404
  Transmission Date: 20081010
  Serious: Yes (Hospitalization)
  Sender: FDA-Public Use
  Company Number: None

PATIENT
  Age: 79 Year
  Sex: Female
  Weight: 75.8 kg

DRUGS (20)
  1. DORIPENEM   500 MG   ORTHO MCNEILL [Suspect]
     Indication: KLEBSIELLA INFECTION
     Dosage: 500 MG Q8H  IV DRIP
     Route: 041
     Dates: start: 20080323, end: 20080328
  2. AMIODARONE [Concomitant]
  3. ASPIRIN [Concomitant]
  4. CLONIDINE HCL [Concomitant]
  5. DESMOPRESSIN ACETATE [Concomitant]
  6. DILTIAZEM [Concomitant]
  7. ENOXAPARIN SODIUM [Concomitant]
  8. FENTANYL [Concomitant]
  9. FUROSEMIDE [Concomitant]
  10. ACETAMINOPHEN AND HYDROCODONE BITARTRATE [Concomitant]
  11. HYDROMORPHONE HCL [Concomitant]
  12. LANSOPRAZOLE [Concomitant]
  13. LEVOTHYROXINE SODIUM [Concomitant]
  14. METOCLOPRAMIDE [Concomitant]
  15. MORPHINE SULFATE [Concomitant]
  16. NITROGLYCERIN [Concomitant]
  17. PHYTONADIONE [Concomitant]
  18. PROPOFOL [Concomitant]
  19. PROPOXYPHENE HYDROCHLORIDE [Concomitant]
  20. TIGACYLCINE [Concomitant]

REACTIONS (1)
  - TRACHEAL HAEMORRHAGE [None]
